FAERS Safety Report 21806467 (Version 1)
Quarter: 2023Q1

REPORT INFORMATION
  Report Type: Spontaneous
  Country: CN (occurrence: CN)
  Receive Date: 20230102
  Receipt Date: 20230102
  Transmission Date: 20230417
  Serious: Yes (Hospitalization)
  Sender: FDA-Public Use
  Company Number: CN-Merck Healthcare KGaA-9374800

PATIENT
  Age: 64 Year
  Sex: Female

DRUGS (4)
  1. ERBITUX [Suspect]
     Active Substance: CETUXIMAB
     Indication: Colon cancer recurrent
     Dosage: 100 MG, OTHER (EVERY 2 WEEKS)
     Route: 041
     Dates: start: 20221028, end: 20221028
  2. OXALIPLATIN [Suspect]
     Active Substance: OXALIPLATIN
     Indication: Colon cancer recurrent
     Dosage: 120 MG, DAILY
     Route: 041
     Dates: start: 20221028, end: 20221028
  3. FLUOROURACIL [Suspect]
     Active Substance: FLUOROURACIL
     Indication: Colon cancer recurrent
     Dosage: 600 MG, DAILY
     Route: 042
     Dates: start: 20221028, end: 20221028
  4. FLUOROURACIL [Suspect]
     Active Substance: FLUOROURACIL
     Dosage: 3500 MG, DAILY (EVERY 46 HOURS)
     Route: 042
     Dates: start: 20221028, end: 20221028

REACTIONS (1)
  - Myelosuppression [Recovering/Resolving]

NARRATIVE: CASE EVENT DATE: 20221031
